FAERS Safety Report 13375087 (Version 1)
Quarter: 2017Q1

REPORT INFORMATION
  Report Type: Spontaneous
  Country: GB (occurrence: GB)
  Receive Date: 20170327
  Receipt Date: 20170327
  Transmission Date: 20170429
  Serious: Yes (Other)
  Sender: FDA-Public Use
  Company Number: GB-009507513-1703GBR010686

PATIENT
  Age: 66 Year
  Sex: Female
  Weight: 98 kg

DRUGS (9)
  1. AMLODIPINE [Concomitant]
     Active Substance: AMLODIPINE BESYLATE
     Route: 055
     Dates: start: 20161220, end: 20161221
  2. FERROUS FUMARATE [Concomitant]
     Active Substance: FERROUS FUMARATE
     Dosage: 1 DF, QD
     Dates: start: 20161220, end: 20170117
  3. RAMIPRIL. [Concomitant]
     Active Substance: RAMIPRIL
     Dosage: REQUIRES ANNUAL CREATININE AND ELECTROLYTES BLOOD TEST.
     Dates: start: 20150413, end: 20170313
  4. FOSTAIR [Concomitant]
     Active Substance: BECLOMETHASONE\FORMOTEROL
     Dosage: 2 DF, BID
     Dates: start: 20170110
  5. PULMICORT TURBUHALER [Concomitant]
     Active Substance: BUDESONIDE
     Route: 055
     Dates: start: 20140520
  6. PIROXICAM. [Concomitant]
     Active Substance: PIROXICAM
     Dosage: 1 DF, TID
     Dates: start: 20170110, end: 20170111
  7. MONTELUKAST SODIUM. [Suspect]
     Active Substance: MONTELUKAST SODIUM
     Dates: start: 20170313
  8. AMLODIPINE [Concomitant]
     Active Substance: AMLODIPINE BESYLATE
     Dosage: 1 DF, QD
     Dates: start: 20160516
  9. SALMETEROL [Concomitant]
     Active Substance: SALMETEROL
     Dosage: 2 DF, QD
     Route: 055
     Dates: start: 20161220, end: 20161221

REACTIONS (2)
  - Hypotension [Recovering/Resolving]
  - Dizziness [Recovering/Resolving]

NARRATIVE: CASE EVENT DATE: 20170313
